FAERS Safety Report 9019773 (Version 1)
Quarter: 2013Q1

REPORT INFORMATION
  Report Type: Report from Study
  Country: CA (occurrence: CA)
  Receive Date: 20130118
  Receipt Date: 20130118
  Transmission Date: 20140127
  Serious: Yes (Hospitalization)
  Sender: FDA-Public Use
  Company Number: CA-ABBOTT-13P-028-1034409-00

PATIENT
  Sex: Female

DRUGS (1)
  1. HUMIRA [Suspect]
     Indication: CROHN^S DISEASE
     Dosage: LAST DOSE: 19 DEC 2012
     Route: 058
     Dates: start: 20060516, end: 20121219

REACTIONS (2)
  - Ulcer [Unknown]
  - Rectal haemorrhage [Unknown]
